FAERS Safety Report 6911068-2 (Version None)
Quarter: 2010Q3

REPORT INFORMATION
  Report Type: 
  Country: None (occurrence: None)
  Receive Date: 20100806
  Receipt Date: 20100728
  Transmission Date: 20110219
  Serious: Yes (Other)
  Sender: FDA-Public Use
  Company Number: AR-B.I. PHARMACEUTICALS,INC./RIDGEFIELD-2010-BP-08623BP

PATIENT
  Age: 30 Year
  Sex: Female

DRUGS (10)
  1. VIRAMUNE [Suspect]
     Indication: HIV INFECTION
     Route: 048
     Dates: start: 20030301
  2. COMBIVIR [Concomitant]
     Indication: ANTIVIRAL TREATMENT
     Route: 048
     Dates: start: 20030301
  3. AMPICILLIN SODIUM [Concomitant]
  4. AZITHROMYCIN [Concomitant]
  5. BETAMETHASONE [Concomitant]
  6. FERROUS SULFATE [Concomitant]
  7. FOLIC ACID [Concomitant]
  8. HEXOPRENALINE SULFATE [Concomitant]
  9. IBUPROFEN TABLETS [Concomitant]
  10. OXYTOCIN [Concomitant]

REACTIONS (1)
  - STILLBIRTH [None]
